FAERS Safety Report 17364910 (Version 1)
Quarter: 2020Q1

REPORT INFORMATION
  Report Type: Report from Study
  Country: JP (occurrence: JP)
  Receive Date: 20200204
  Receipt Date: 20200204
  Transmission Date: 20200409
  Serious: Yes (Other)
  Sender: FDA-Public Use
  Company Number: JP-GLAXOSMITHKLINE-A200700923

PATIENT
  Age: 6 Year
  Sex: Male
  Weight: 21 kg

DRUGS (5)
  1. BIOFERMIN R [Concomitant]
     Active Substance: DIETARY SUPPLEMENT\PROBIOTICS
     Indication: INFLUENZA
     Route: 048
     Dates: start: 20070302, end: 20070302
  2. ZANAMIVIR [Suspect]
     Active Substance: ZANAMIVIR
     Indication: INFLUENZA
     Dosage: 10 MG, BID
     Route: 055
     Dates: start: 20070302, end: 20070302
  3. ASVERIN (TIPEPIDINE HIBENZATE) [Concomitant]
     Active Substance: TIPEPIDINE HIBENZATE
     Indication: INFLUENZA
     Route: 048
     Dates: start: 20070302, end: 20070302
  4. CRAVIT [Concomitant]
     Active Substance: LEVOFLOXACIN
     Indication: INFLUENZA
     Route: 048
     Dates: start: 20070302, end: 20070302
  5. CALONAL [Concomitant]
     Active Substance: ACETAMINOPHEN
     Indication: INFLUENZA
     Route: 048

REACTIONS (1)
  - Hallucination [Recovered/Resolved]

NARRATIVE: CASE EVENT DATE: 20070303
